FAERS Safety Report 20175219 (Version 2)
Quarter: 2021Q4

REPORT INFORMATION
  Report Type: Report from Study
  Country: JP (occurrence: JP)
  Receive Date: 20211213
  Receipt Date: 20211221
  Transmission Date: 20220303
  Serious: Yes (Hospitalization)
  Sender: FDA-Public Use
  Company Number: JP-CHUGAI-2021000522

PATIENT
  Age: 84 Year
  Sex: Male
  Weight: 51.2 kg

DRUGS (11)
  1. ATEZOLIZUMAB [Suspect]
     Active Substance: ATEZOLIZUMAB
     Indication: Hepatocellular carcinoma
     Route: 041
     Dates: start: 20210120
  2. ATEZOLIZUMAB [Suspect]
     Active Substance: ATEZOLIZUMAB
     Dosage: 1200 MILLIGRAM
     Route: 041
     Dates: start: 20210331
  3. ATEZOLIZUMAB [Suspect]
     Active Substance: ATEZOLIZUMAB
     Dosage: 1200 MILLIGRAM
     Route: 041
     Dates: start: 20210721
  4. ATEZOLIZUMAB [Suspect]
     Active Substance: ATEZOLIZUMAB
     Dosage: 1200 MILLIGRAM
     Route: 041
     Dates: start: 20211014
  5. BEVACIZUMAB [Suspect]
     Active Substance: BEVACIZUMAB
     Indication: Hepatocellular carcinoma
     Dosage: 15 MILLIGRAM/KILOGRAM
     Route: 041
     Dates: start: 20210120
  6. BEVACIZUMAB [Suspect]
     Active Substance: BEVACIZUMAB
     Dosage: 890 MILLIGRAM
     Route: 041
     Dates: start: 20210331
  7. BEVACIZUMAB [Suspect]
     Active Substance: BEVACIZUMAB
     Dosage: 890 MILLIGRAM
     Route: 041
     Dates: start: 20210721
  8. BEVACIZUMAB [Suspect]
     Active Substance: BEVACIZUMAB
     Dosage: 890 MILLIGRAM
     Route: 041
     Dates: start: 20211014
  9. ASPIRIN [Concomitant]
     Active Substance: ASPIRIN
     Indication: Ischaemic heart disease prophylaxis
     Dosage: UNK
     Route: 048
     Dates: start: 2007
  10. AMLODIPINE BESYLATE [Concomitant]
     Active Substance: AMLODIPINE BESYLATE
     Indication: Hypertension
     Route: 048
  11. HEPAACT [Concomitant]
     Indication: Hepatic cirrhosis
     Route: 048

REACTIONS (1)
  - Pneumonia [Recovering/Resolving]

NARRATIVE: CASE EVENT DATE: 20211125
